FAERS Safety Report 5789376-0 (Version None)
Quarter: 2008Q2

REPORT INFORMATION
  Report Type: 
  Country: None (occurrence: None)
  Receive Date: 20080626
  Receipt Date: 20080123
  Transmission Date: 20081010
  Serious: No
  Sender: FDA-Public Use
  Company Number: US-ASTRAZENECA-2008UW01736

PATIENT
  Age: 67 Year
  Sex: Female
  Weight: 90.7 kg

DRUGS (9)
  1. PULMICORT FLEXHALER [Suspect]
     Indication: ASTHMA
     Dosage: 1-2 PUFFS BID
     Route: 055
     Dates: start: 20071101
  2. MAXAIR [Concomitant]
  3. CLONIDINE [Concomitant]
  4. ARMOUR [Concomitant]
  5. ASPIRIN [Concomitant]
  6. COQ10 [Concomitant]
  7. ALLEGRA [Concomitant]
  8. SINGULAIR [Concomitant]
  9. MULTI-VITAMINS [Concomitant]

REACTIONS (5)
  - BLOOD PRESSURE INCREASED [None]
  - DIZZINESS [None]
  - DRY MOUTH [None]
  - DRY THROAT [None]
  - PALPITATIONS [None]
